FAERS Safety Report 6426486-9 (Version None)
Quarter: 2009Q4

REPORT INFORMATION
  Report Type: 
  Country: None (occurrence: None)
  Receive Date: 20091104
  Receipt Date: 20091026
  Transmission Date: 20100525
  Serious: Yes (Hospitalization)
  Sender: FDA-Public Use
  Company Number: TW-BAXTER-2009BH016554

PATIENT
  Sex: Male

DRUGS (2)
  1. TISSUCOL/TISSEEL DUO STIM4 [Suspect]
     Indication: CRANIOTOMY
     Route: 065
     Dates: start: 20090925, end: 20090925
  2. MANNITOL [Concomitant]

REACTIONS (1)
  - HYPOAESTHESIA [None]
